FAERS Safety Report 23879612 (Version 1)
Quarter: 2024Q2

REPORT INFORMATION
  Report Type: Spontaneous
  Country: US (occurrence: None)
  Receive Date: 20240520
  Receipt Date: 20240520
  Transmission Date: 20240716
  Serious: Yes (Hospitalization)
  Sender: FDA-Public Use
  Company Number: None

PATIENT
  Age: 60 Year
  Sex: Female
  Weight: 62.55 kg

DRUGS (8)
  1. MYCOPHENOLIC ACID [Suspect]
     Active Substance: MYCOPHENOLIC ACID
     Indication: Prophylaxis
     Dosage: 360 MG TWICE A DAY ORAL?
     Route: 048
     Dates: start: 20210114
  2. SIROLIMUS [Suspect]
     Active Substance: SIROLIMUS
     Indication: Prophylaxis
     Dosage: 3 MG TWICE A DAY ORAL
     Route: 048
     Dates: start: 20210114
  3. VITAMIN D3 [Concomitant]
  4. PRALUENT [Concomitant]
  5. MELATONIN [Concomitant]
  6. mag-oxide [Concomitant]
  7. aspirin [Concomitant]
  8. CLONAZEPAM [Concomitant]

REACTIONS (1)
  - Pneumonia [None]

NARRATIVE: CASE EVENT DATE: 20240518
